FAERS Safety Report 12190321 (Version 1)
Quarter: 2016Q1

REPORT INFORMATION
  Report Type: Spontaneous
  Country: US (occurrence: None)
  Receive Date: 20160317
  Receipt Date: 20160317
  Transmission Date: 20160526
  Serious: Yes (Other)
  Sender: FDA-Public Use
  Company Number: None

PATIENT
  Age: 27 Year
  Sex: Female

DRUGS (1)
  1. TEMOZOLOMIDE. [Suspect]
     Active Substance: TEMOZOLOMIDE

REACTIONS (6)
  - Weight decreased [None]
  - Hair growth abnormal [None]
  - Diarrhoea [None]
  - Decreased appetite [None]
  - Parosmia [None]
  - Dysgeusia [None]

NARRATIVE: CASE EVENT DATE: 20160315
